FAERS Safety Report 9536702 (Version 2)
Quarter: 2015Q4

REPORT INFORMATION
  Report Type: Spontaneous
  Country: US (occurrence: US)
  Receive Date: 20130919
  Receipt Date: 20151206
  Transmission Date: 20160305
  Serious: No
  Sender: FDA-Public Use
  Company Number: US-009507513-1309USA008542

PATIENT
  Age: 19 Year
  Sex: Female
  Weight: 72.56 kg

DRUGS (2)
  1. NUVARING [Suspect]
     Active Substance: ETHINYL ESTRADIOL\ETONOGESTREL
     Indication: CONTRACEPTION
     Dosage: 1 RING FOR 3 WEEKS FOLLOWED BY A WEEK FREE BREAK
     Route: 067
     Dates: start: 20130905
  2. NUVARING [Suspect]
     Active Substance: ETHINYL ESTRADIOL\ETONOGESTREL
     Dosage: 1 RING FOR 3 WEEK USE
     Route: 067
     Dates: start: 201310

REACTIONS (2)
  - Inappropriate schedule of drug administration [Unknown]
  - Vaginal discharge [Not Recovered/Not Resolved]

NARRATIVE: CASE EVENT DATE: 20130916
